FAERS Safety Report 21565954 (Version 5)
Quarter: 2023Q2

REPORT INFORMATION
  Report Type: Report from Study
  Country: US (occurrence: US)
  Receive Date: 20221108
  Receipt Date: 20230427
  Transmission Date: 20230722
  Serious: Yes (Other)
  Sender: FDA-Public Use
  Company Number: US-002147023-NVSC2022US249129

PATIENT
  Age: 48 Year
  Sex: Female

DRUGS (1)
  1. KESIMPTA [Suspect]
     Active Substance: OFATUMUMAB
     Indication: Multiple sclerosis
     Dosage: 20 MG, QMO
     Route: 058
     Dates: start: 20220726

REACTIONS (3)
  - Deep vein thrombosis [Recovering/Resolving]
  - Pain in extremity [Unknown]
  - Skin lesion [Recovered/Resolved]

NARRATIVE: CASE EVENT DATE: 20221024
